FAERS Safety Report 8951190 (Version 1)
Quarter: 2012Q4

REPORT INFORMATION
  Report Type: Spontaneous
  Country: US (occurrence: None)
  Receive Date: 20121106
  Receipt Date: 20121106
  Transmission Date: 20130627
  Serious: Yes (Death, Hospitalization)
  Sender: FDA-Public Use
  Company Number: 2012PROUSA01978

PATIENT
  Age: 78 Year
  Sex: Male
  Weight: 65.8 kg

DRUGS (11)
  1. PROVENGE (SIPULEUCEL-T) SUSPENSION, 250ML [Suspect]
     Indication: PROSTATE CANCER METASTATIC
     Route: 042
     Dates: start: 20120809, end: 20120809
  2. PROVENGE (SIPULEUCEL-T) SUSPENSION, 250ML [Suspect]
     Indication: PROSTATE CANCER METASTATIC
     Route: 042
     Dates: start: 20120823, end: 20120823
  3. PROVENGE (SIPULEUCEL-T) SUSPENSION, 250ML [Suspect]
     Indication: PROSTATE CANCER METASTATIC
     Route: 042
     Dates: start: 20120913, end: 20120913
  4. TRLSTAR (TRIPTOCRELIN EMBONATE) [Concomitant]
  5. TIMOPTIC (TIMOLOL MALEATE) [Concomitant]
  6. FISH OIL (FISH OIL) [Concomitant]
  7. COENZYME Q10 (UBIDECARENONE) [Concomitant]
  8. GLUCOSAMINE (GLUCOSAMINE) [Concomitant]
  9. TYLEONOL (PARACETAMOL) [Concomitant]
  10. CIPRO (CIPROFLOXACIN LACTATE) [Concomitant]
  11. RAPAFLO (SILODOSIN) [Concomitant]

REACTIONS (8)
  - Cystitis [None]
  - Heart rate increased [None]
  - Haematocrit decreased [None]
  - Haematuria [None]
  - Urinary retention [None]
  - Sepsis [None]
  - Stenotrophomonas test positive [None]
  - No therapeutic response [None]
